FAERS Safety Report 5315098-6 (Version None)
Quarter: 2007Q2

REPORT INFORMATION
  Report Type: 
  Country: None (occurrence: None)
  Receive Date: 20070502
  Receipt Date: 20070420
  Transmission Date: 20071010
  Serious: Yes (Other)
  Sender: FDA-Public Use
  Company Number: DK-BOEHRINGER INGELHEIM PHARMACEUTICALS, INC.-2007-DE-02292GD

PATIENT

DRUGS (6)
  1. PARACETAMOL [Suspect]
     Indication: PAIN
  2. ACETYLSALICYLIC ACID SRT [Suspect]
     Indication: PAIN
  3. IBUPROFEN [Suspect]
     Indication: PAIN
  4. MELOXICAM [Suspect]
     Indication: PAIN
  5. NAPROXEN [Suspect]
     Indication: PAIN
  6. PIROXICAM THOMAE [Suspect]
     Indication: PAIN

REACTIONS (1)
  - FRACTURE [None]
